FAERS Safety Report 6763462-0 (Version None)
Quarter: 2010Q2

REPORT INFORMATION
  Report Type: 
  Country: None (occurrence: None)
  Receive Date: 20100608
  Receipt Date: 20100523
  Transmission Date: 20101027
  Serious: Yes (Death, Life-Threatening, Hospitalization, Other)
  Sender: FDA-Public Use
  Company Number: A-US2010-35660

PATIENT
  Age: 54 Year
  Sex: Male

DRUGS (20)
  1. VENTAVIS [Suspect]
     Indication: PULMONARY ARTERIAL HYPERTENSION
     Dosage: 6 X DAY, RESPIRATORY
     Route: 055
     Dates: start: 20090702
  2. TRACLEER [Concomitant]
  3. SILDENAFIL CITRATE [Concomitant]
  4. PHENPROCOUMON (PHENPROCOUMON) [Concomitant]
  5. FUROSEMIDE [Concomitant]
  6. SPIRONOLACTONE [Concomitant]
  7. OXYGEN (OXYGEN) [Concomitant]
  8. AMIODARONE (AMIODARONE HYDROCHLORIDE) [Concomitant]
  9. MIDAZOLAM HYDROCHLORIDE [Concomitant]
  10. HEPARIN [Concomitant]
  11. PIPERACILLIN [Concomitant]
  12. ASPIRIN [Concomitant]
  13. NORADRENALIN (NOREPINEPHRINE) [Concomitant]
  14. FENTANYL CITRATE [Concomitant]
  15. CLOPIDOGREL [Concomitant]
  16. OXYCODONE HCL [Concomitant]
  17. NAPROXEN [Concomitant]
  18. DIGITOXIN INJ [Concomitant]
  19. METAMIDOL (DIAZEPAM) [Concomitant]
  20. AMINO ACIDS [Concomitant]

REACTIONS (11)
  - CARDIOGENIC SHOCK [None]
  - CIRCULATORY COLLAPSE [None]
  - CONVULSION [None]
  - HYPOTHERMIA [None]
  - HYPOXIC ENCEPHALOPATHY [None]
  - LOSS OF CONSCIOUSNESS [None]
  - MYOCARDIAL INFARCTION [None]
  - PERICARDIAL EFFUSION [None]
  - PNEUMONIA ASPIRATION [None]
  - RIGHT VENTRICULAR FAILURE [None]
  - VENTRICULAR TACHYCARDIA [None]
